FAERS Safety Report 11118834 (Version 1)
Quarter: 2015Q2

REPORT INFORMATION
  Report Type: Spontaneous
  Country: US (occurrence: None)
  Receive Date: 20150515
  Receipt Date: 20150515
  Transmission Date: 20150821
  Serious: No
  Sender: FDA-Public Use
  Company Number: None

PATIENT
  Age: 24 Year
  Sex: Female
  Weight: 53.52 kg

DRUGS (5)
  1. ALLERGY RELIEF/NASAL DECONGESTAN 24 LORATADINE 10MG PSEUDOEPHEDRINE RITE AID [Suspect]
     Active Substance: LORATADINE\PSEUDOEPHEDRINE SULFATE
     Indication: MULTIPLE ALLERGIES
     Dates: start: 20150513, end: 20150514
  2. OMEGA 3 FISH OIL [Concomitant]
     Active Substance: FISH OIL\OMEGA-3 FATTY ACIDS
  3. ALLERGY RELIEF/NASAL DECONGESTAN 24 LORATADINE 10MG PSEUDOEPHEDRINE RITE AID [Suspect]
     Active Substance: LORATADINE\PSEUDOEPHEDRINE SULFATE
     Indication: THROAT IRRITATION
     Dates: start: 20150513, end: 20150514
  4. ALLERGY RELIEF/NASAL DECONGESTAN 24 LORATADINE 10MG PSEUDOEPHEDRINE RITE AID [Suspect]
     Active Substance: LORATADINE\PSEUDOEPHEDRINE SULFATE
     Indication: RHINORRHOEA
     Dates: start: 20150513, end: 20150514
  5. CALCIUM [Concomitant]
     Active Substance: CALCIUM

REACTIONS (4)
  - Vomiting [None]
  - Chills [None]
  - Hot flush [None]
  - Somnolence [None]

NARRATIVE: CASE EVENT DATE: 20150513
